FAERS Safety Report 10567267 (Version 1)
Quarter: 2014Q4

REPORT INFORMATION
  Report Type: Report from Study
  Country: ZA (occurrence: ZA)
  Receive Date: 20141106
  Receipt Date: 20141106
  Transmission Date: 20150529
  Serious: Yes (Death)
  Sender: FDA-Public Use
  Company Number: ZA-ROCHE-1486296

PATIENT
  Sex: Male

DRUGS (2)
  1. VENOFER [Concomitant]
     Active Substance: IRON SUCROSE
     Route: 042
  2. MIRCERA [Suspect]
     Active Substance: PEGZEREPOETIN ALFA
     Indication: NEPHROGENIC ANAEMIA
     Route: 058
     Dates: start: 201307, end: 201410

REACTIONS (1)
  - Cardiac arrest [Fatal]
